FAERS Safety Report 8275279-9 (Version None)
Quarter: 2012Q2

REPORT INFORMATION
  Report Type: 
  Country: None (occurrence: None)
  Receive Date: 20120411
  Receipt Date: 20120405
  Transmission Date: 20120825
  Serious: Yes (Other)
  Sender: FDA-Public Use
  Company Number: GB-PFIZER INC-2012048997

PATIENT
  Age: 76 Year
  Sex: Male

DRUGS (10)
  1. RAMIPRIL [Concomitant]
  2. PROSTEP [Concomitant]
     Indication: PROSTATE CANCER
     Dosage: 1 DF, 1/3 MONTHS
  3. THIAMINE [Concomitant]
  4. TAMSULOSIN [Concomitant]
  5. FYBOGEL [Concomitant]
  6. MORPHINE SULFATE [Concomitant]
  7. PARACETAMOL [Concomitant]
     Dosage: UNK %, EVERY 3 MONTHS
  8. ADCAL-D3 [Concomitant]
  9. OMEPRAZOLE [Concomitant]
  10. SERTRALINE HYDROCHLORIDE [Suspect]
     Dosage: UNK
     Dates: start: 20120126

REACTIONS (1)
  - HYPERKALAEMIA [None]
